FAERS Safety Report 4294169-X (Version None)
Quarter: 2004Q1

REPORT INFORMATION
  Report Type: 
  Country: None (occurrence: None)
  Receive Date: 20040213
  Receipt Date: 19950628
  Transmission Date: 20041129
  Serious: Yes (Hospitalization)
  Sender: FDA-Public Use
  Company Number: USA/95/01446/PLO

PATIENT
  Age: 29 Year
  Sex: Female

DRUGS (1)
  1. PARLODEL [Suspect]
     Indication: SUPPRESSED LACTATION
     Dosage: UNKNOWN
     Route: 048
     Dates: start: 19910717

REACTIONS (14)
  - ANXIETY [None]
  - BLOOD CREATINE PHOSPHOKINASE INCREASED [None]
  - CEREBRAL HAEMORRHAGE [None]
  - COORDINATION ABNORMAL [None]
  - ELECTROENCEPHALOGRAM ABNORMAL [None]
  - HEADACHE [None]
  - HYPERTENSION [None]
  - LIVER FUNCTION TEST ABNORMAL [None]
  - LOSS OF CONSCIOUSNESS [None]
  - PAIN [None]
  - PUPILLARY REFLEX IMPAIRED [None]
  - RESPIRATORY RATE INCREASED [None]
  - STATUS EPILEPTICUS [None]
  - UPPER RESPIRATORY TRACT CONGESTION [None]
